FAERS Safety Report 4968838-X (Version None)
Quarter: 2006Q2

REPORT INFORMATION
  Report Type: 
  Country: None (occurrence: None)
  Receive Date: 20060411
  Receipt Date: 20060321
  Transmission Date: 20061013
  Serious: Yes (Hospitalization)
  Sender: FDA-Public Use
  Company Number: DE-ABBOTT-06P-062-0328782-00

PATIENT
  Sex: Male

DRUGS (21)
  1. VALPROATE SODIUM [Suspect]
     Indication: MANIA
  2. VALPROATE SODIUM [Suspect]
     Indication: SCHIZOID PERSONALITY DISORDER
     Route: 048
     Dates: start: 20060106, end: 20060109
  3. VALPROATE SODIUM [Suspect]
     Route: 048
     Dates: start: 20060110, end: 20060210
  4. VALPROATE SODIUM [Suspect]
     Route: 030
     Dates: start: 20060131, end: 20060201
  5. VALPROATE SODIUM [Suspect]
     Route: 048
     Dates: start: 20060121, end: 20060210
  6. RISPERIDONE [Suspect]
     Indication: SCHIZOID PERSONALITY DISORDER
  7. RISPERIDONE [Suspect]
     Indication: MANIA
     Route: 048
     Dates: start: 20060110, end: 20060210
  8. ZUCLOPENTHIXOL HYDROCHLORIDE [Suspect]
     Indication: AGGRESSION
     Dosage: 200 MG PER ML
     Route: 030
     Dates: start: 20060131, end: 20060131
  9. ZUCLOPENTHIXOL HYDROCHLORIDE [Suspect]
     Route: 048
     Dates: start: 20060131, end: 20060201
  10. PANTOPRAZOLE SODIUM [Suspect]
     Indication: ABDOMINAL PAIN UPPER
     Route: 048
     Dates: start: 20060121, end: 20060210
  11. PANTOPRAZOLE SODIUM [Suspect]
     Indication: DYSPEPSIA
     Route: 048
     Dates: start: 20060201, end: 20060228
  12. BIPERIDEN HYDROCHLORIDE TAB [Concomitant]
     Indication: EXTRAPYRAMIDAL DISORDER
     Route: 048
     Dates: start: 20060104, end: 20060210
  13. DIAZEPAM [Concomitant]
     Indication: PSYCHOSOMATIC DISEASE
     Route: 048
     Dates: start: 20060103, end: 20060210
  14. DIAZEPAM [Concomitant]
     Indication: RESTLESSNESS
     Route: 048
     Dates: start: 20060201, end: 20060228
  15. FLUPHENAZINE [Concomitant]
     Indication: DRUG USE FOR UNKNOWN INDICATION
     Dates: start: 20060101, end: 20060101
  16. LEVOMEPROMAZINE [Concomitant]
     Indication: DRUG USE FOR UNKNOWN INDICATION
     Dates: start: 20060101, end: 20060130
  17. HALOPERIDOL [Concomitant]
     Indication: DRUG USE FOR UNKNOWN INDICATION
  18. LITHIUM [Concomitant]
     Indication: DRUG USE FOR UNKNOWN INDICATION
  19. CARBAMAZEPINE [Concomitant]
     Indication: DRUG USE FOR UNKNOWN INDICATION
  20. LORAZEPAM [Concomitant]
     Indication: DRUG USE FOR UNKNOWN INDICATION
  21. AMITRIPTYLINE HCL [Concomitant]
     Indication: DRUG USE FOR UNKNOWN INDICATION

REACTIONS (6)
  - AGGRESSION [None]
  - BILIRUBIN CONJUGATED INCREASED [None]
  - BLOOD BILIRUBIN INCREASED [None]
  - HEPATITIS TOXIC [None]
  - JAUNDICE [None]
  - TREATMENT NONCOMPLIANCE [None]
